FAERS Safety Report 15099228 (Version 1)
Quarter: 2018Q3

REPORT INFORMATION
  Report Type: Spontaneous
  Country: US (occurrence: US)
  Receive Date: 20180702
  Receipt Date: 20180702
  Transmission Date: 20181010
  Serious: No
  Sender: FDA-Public Use
  Company Number: US-PFM-2018-02099

PATIENT

DRUGS (3)
  1. TIMOLOL. [Concomitant]
     Active Substance: TIMOLOL
     Indication: HAEMANGIOMA
     Route: 061
  2. HEMANGEOL [Suspect]
     Active Substance: PROPRANOLOL HYDROCHLORIDE
     Indication: HAEMANGIOMA
     Dosage: 0.8 ML, BID (2/DAY)
     Route: 048
     Dates: start: 20180206
  3. HEMANGEOL [Suspect]
     Active Substance: PROPRANOLOL HYDROCHLORIDE
     Dosage: 2 ML, BID (2/DAY)
     Route: 048
     Dates: start: 20180206

REACTIONS (1)
  - Insomnia [Not Recovered/Not Resolved]
